FAERS Safety Report 24943668 (Version 1)
Quarter: 2025Q1

REPORT INFORMATION
  Report Type: Spontaneous
  Country: US (occurrence: US)
  Receive Date: 20250207
  Receipt Date: 20250207
  Transmission Date: 20250408
  Serious: Yes (Death, Other)
  Sender: GLAXOSMITHKLINE
  Company Number: US-GLAXOSMITHKLINE INC-US2025015180

PATIENT

DRUGS (1)
  1. TRELEGY ELLIPTA [Suspect]
     Active Substance: FLUTICASONE FUROATE\UMECLIDINIUM BROMIDE\VILANTEROL TRIFENATATE
     Indication: Product used for unknown indication

REACTIONS (10)
  - Chronic obstructive pulmonary disease [Fatal]
  - Pulmonary oedema [Unknown]
  - Hip fracture [Unknown]
  - Neoplasm malignant [Unknown]
  - Pneumonia [Unknown]
  - Hydronephrosis [Unknown]
  - Cerebrovascular accident [Unknown]
  - Respiratory failure [Unknown]
  - Fall [Unknown]
  - Cardiac disorder [Unknown]
